FAERS Safety Report 24674532 (Version 1)
Quarter: 2024Q4

REPORT INFORMATION
  Report Type: Spontaneous
  Country: GB (occurrence: GB)
  Receive Date: 20241128
  Receipt Date: 20241128
  Transmission Date: 20250114
  Serious: Yes (Other)
  Sender: TEVA
  Company Number: GB-TEVA-VS-3268481

PATIENT
  Age: 57 Year
  Sex: Female

DRUGS (8)
  1. LOPERAMIDE [Suspect]
     Active Substance: LOPERAMIDE
     Indication: Bile acid malabsorption
     Route: 065
  2. LIRAGLUTIDE [Suspect]
     Active Substance: LIRAGLUTIDE
     Indication: Frequent bowel movements
     Route: 065
  3. LIRAGLUTIDE [Suspect]
     Active Substance: LIRAGLUTIDE
     Indication: Frequent bowel movements
     Dosage: SPLITDOSE APPROACH, IN THE MORNING
     Route: 065
  4. LIRAGLUTIDE [Suspect]
     Active Substance: LIRAGLUTIDE
     Indication: Frequent bowel movements
     Route: 065
  5. LIRAGLUTIDE [Suspect]
     Active Substance: LIRAGLUTIDE
     Indication: Frequent bowel movements
     Dosage: SPLITDOSE APPROACH, IN THE EVENING
     Route: 065
  6. COLESEVELAM [Suspect]
     Active Substance: COLESEVELAM
     Indication: Bile acid malabsorption
     Route: 065
  7. CODEINE [Suspect]
     Active Substance: CODEINE
     Indication: Bile acid malabsorption
     Route: 065
  8. CHOLESTYRAMINE [Suspect]
     Active Substance: CHOLESTYRAMINE
     Indication: Bile acid malabsorption
     Route: 065

REACTIONS (7)
  - Drug intolerance [Unknown]
  - Nausea [Recovered/Resolved]
  - Anal incontinence [Recovering/Resolving]
  - Nocturia [Recovering/Resolving]
  - Quality of life decreased [Recovering/Resolving]
  - Gastrointestinal disorder [Recovering/Resolving]
  - Drug ineffective [Unknown]
